FAERS Safety Report 7911937-0 (Version None)
Quarter: 2011Q4

REPORT INFORMATION
  Report Type: 
  Country: None (occurrence: None)
  Receive Date: 20111114
  Receipt Date: 20111102
  Transmission Date: 20120403
  Serious: Yes (Other)
  Sender: FDA-Public Use
  Company Number: GB-TEVA-308094ISR

PATIENT
  Age: 82 Year
  Sex: Female

DRUGS (1)
  1. TRIMETHOPRIM [Suspect]
     Indication: URINARY TRACT INFECTION
     Route: 048
     Dates: start: 20111017, end: 20111023

REACTIONS (3)
  - FATIGUE [None]
  - DYSPNOEA [None]
  - PALPITATIONS [None]
